FAERS Safety Report 8275283-0 (Version None)
Quarter: 2012Q2

REPORT INFORMATION
  Report Type: 
  Country: None (occurrence: None)
  Receive Date: 20120411
  Receipt Date: 20120405
  Transmission Date: 20120825
  Serious: Yes (Disabling, Other)
  Sender: FDA-Public Use
  Company Number: US-PFIZER INC-2012081038

PATIENT
  Sex: Female
  Weight: 57.143 kg

DRUGS (11)
  1. IBUPROFEN (ADVIL) [Suspect]
     Indication: HEADACHE
     Dosage: 200 MG, AS NEEDED
     Route: 048
  2. IBUPROFEN (ADVIL) [Suspect]
     Indication: FIBROMYALGIA
  3. VALIUM [Concomitant]
     Indication: NERVOUSNESS
  4. LEVOTHYROXINE [Concomitant]
     Indication: HYPERTHYROIDISM
     Dosage: UNK
  5. LISINOPRIL [Concomitant]
     Indication: HYPERTENSION
     Dosage: UNK
  6. ALENDRONATE SODIUM [Concomitant]
     Dosage: UNK, WEEKLY
  7. IBUPROFEN (ADVIL) [Suspect]
     Indication: PAIN
  8. LOVASTATIN [Concomitant]
     Indication: BLOOD CHOLESTEROL INCREASED
     Dosage: UNK
  9. VALIUM [Concomitant]
     Indication: FEAR
  10. CALCIUM [Concomitant]
     Dosage: UNK
  11. VALIUM [Concomitant]
     Indication: ANXIETY
     Dosage: UNK

REACTIONS (4)
  - VISUAL IMPAIRMENT [None]
  - FIBROMYALGIA [None]
  - PAIN [None]
  - MACULAR HOLE [None]
